FAERS Safety Report 23153635 (Version 1)
Quarter: 2023Q4

REPORT INFORMATION
  Report Type: Spontaneous
  Country: US (occurrence: US)
  Receive Date: 20231107
  Receipt Date: 20231107
  Transmission Date: 20240109
  Serious: No
  Sender: FDA-Public Use
  Company Number: US-ALKERMES INC.-ALK-2023-004193

PATIENT
  Age: 28 Year
  Sex: Male

DRUGS (1)
  1. ARISTADA [Suspect]
     Active Substance: ARIPIPRAZOLE LAUROXIL
     Indication: Schizophrenia
     Dosage: 662 MILLIGRAM, QMO
     Route: 030

REACTIONS (3)
  - Product administered at inappropriate site [Not Recovered/Not Resolved]
  - Lack of administration site rotation [Recovered/Resolved]
  - Injection site nodule [Recovered/Resolved]
